FAERS Safety Report 8838374 (Version 1)
Quarter: 2012Q4

REPORT INFORMATION
  Report Type: 
  Country: US (occurrence: US)
  Receive Date: 20121012
  Receipt Date: 20121012
  Transmission Date: 20130627
  Serious: Yes (Other)
  Sender: FDA-Public Use
  Company Number: US-CELGENEUS-163-20785-07050889

PATIENT

DRUGS (8)
  1. THALIDOMIDE [Suspect]
     Indication: MYELOFIBROSIS
     Dosage: 50mg X2 weeks then 100mg QD
     Route: 048
     Dates: start: 200501
  2. THALIDOMIDE [Suspect]
     Indication: MYELODYSPLASTIC SYNDROME
  3. ARSENIC TRIOXIDE [Suspect]
     Indication: MYELOFIBROSIS
     Dosage: 0.25mg/kg QD days 1-5 Week 1 then BIW Weeks 2-12
     Route: 041
     Dates: start: 200501, end: 200606
  4. ARSENIC TRIOXIDE [Suspect]
     Indication: MYELODYSPLASTIC SYNDROME
  5. DEXAMETHASONE [Suspect]
     Indication: MYELOFIBROSIS
     Dosage: 4 Milligram
     Route: 048
     Dates: start: 200501, end: 200606
  6. DEXAMETHASONE [Suspect]
     Indication: MYELODYSPLASTIC SYNDROME
  7. ASCORBIC ACID [Suspect]
     Indication: MYELOFIBROSIS
     Dosage: 1000mg 1-2 hours prior to each ATO infusion
     Route: 048
     Dates: start: 200501, end: 200606
  8. ASCORBIC ACID [Suspect]
     Indication: MYELODYSPLASTIC SYNDROME

REACTIONS (59)
  - Pericardial effusion [Unknown]
  - Electrocardiogram QT prolonged [Unknown]
  - Cardiac tamponade [Unknown]
  - Hypoxia [Unknown]
  - Sleep disorder [Unknown]
  - Pneumonitis [Unknown]
  - Herpes zoster [Unknown]
  - Pleural effusion [Unknown]
  - Haematoma [Unknown]
  - Contusion [Unknown]
  - Leukocytosis [Unknown]
  - Bone pain [Unknown]
  - Myalgia [Unknown]
  - Peripheral motor neuropathy [Unknown]
  - Tachycardia [Unknown]
  - Renal failure [Unknown]
  - Chills [Unknown]
  - Atrial fibrillation [Unknown]
  - Dyspnoea [Unknown]
  - Hypotension [Unknown]
  - Peripheral sensory neuropathy [Unknown]
  - Fatigue [Unknown]
  - Neutropenia [Unknown]
  - Vomiting [Unknown]
  - Oedema [Unknown]
  - Thrombocytopenia [Unknown]
  - Infection [Unknown]
  - Acute myeloid leukaemia [Unknown]
  - Rash [Unknown]
  - Oedema peripheral [Unknown]
  - Splenomegaly [Unknown]
  - Dysuria [Unknown]
  - Hearing impaired [Unknown]
  - Visual impairment [Unknown]
  - Weight fluctuation [Unknown]
  - Night sweats [Unknown]
  - Lymphadenopathy [Unknown]
  - Pigmentation disorder [Unknown]
  - Alopecia [Unknown]
  - Cough [Unknown]
  - Hypomagnesaemia [Unknown]
  - Headache [Unknown]
  - Epistaxis [Unknown]
  - Decreased appetite [Unknown]
  - Dehydration [Unknown]
  - Hypertension [Unknown]
  - Diarrhoea [Unknown]
  - Transaminases increased [Unknown]
  - Dry mouth [Unknown]
  - Dyspepsia [Unknown]
  - Nausea [Unknown]
  - Constipation [Unknown]
  - Sexual dysfunction [Unknown]
  - Anxiety [Unknown]
  - Confusional state [Unknown]
  - Dizziness [Unknown]
  - Pyrexia [Unknown]
  - Pruritus [Unknown]
  - Anaemia [Unknown]
